FAERS Safety Report 25147718 (Version 1)
Quarter: 2025Q2

REPORT INFORMATION
  Report Type: Spontaneous
  Country: AU (occurrence: AU)
  Receive Date: 20250402
  Receipt Date: 20250402
  Transmission Date: 20250717
  Serious: Yes (Other)
  Sender: ALKEM
  Company Number: AU-ALKEM LABORATORIES LIMITED-AU-ALKEM-2025-03195

PATIENT
  Age: 29 Year
  Sex: Female

DRUGS (1)
  1. IBUPROFEN [Suspect]
     Active Substance: IBUPROFEN
     Indication: Product used for unknown indication
     Route: 065

REACTIONS (7)
  - Cholecystitis infective [Unknown]
  - Cholelithiasis [Unknown]
  - Gallbladder disorder [Unknown]
  - Migraine [Unknown]
  - Pain [Unknown]
  - Hepatic enzyme increased [Unknown]
  - Chest pain [Unknown]
